FAERS Safety Report 9521855 (Version 1)
Quarter: 2013Q1

REPORT INFORMATION
  Report Type: Spontaneous
  Country: US (occurrence: None)
  Receive Date: 20130305
  Receipt Date: 20130305
  Transmission Date: 20140127
  Serious: Yes (Other)
  Sender: FDA-Public Use
  Company Number: 163-21880-12013236

PATIENT
  Age: 50 Year
  Sex: Female

DRUGS (2)
  1. REVLIMID (LENALIDOMIDE) (CAPSULES) [Suspect]
     Indication: PLASMA CELL MYELOMA
     Dosage: 10 MG, DAILY FOR 21/28 DAYS, PO
     Route: 048
     Dates: start: 201111, end: 2011
  2. OS-CAL (OS-CAL) (UNKNOWN) [Concomitant]

REACTIONS (3)
  - Fatigue [None]
  - Pyrexia [None]
  - Malaise [None]
